FAERS Safety Report 6338027-5 (Version None)
Quarter: 2009Q3

REPORT INFORMATION
  Report Type: 
  Country: None (occurrence: None)
  Receive Date: 20090902
  Receipt Date: 20090825
  Transmission Date: 20100115
  Serious: Yes (Other)
  Sender: FDA-Public Use
  Company Number: US-GILEAD-2009-0023904

PATIENT
  Age: 58 Year
  Sex: Female

DRUGS (2)
  1. HEPSERA [Suspect]
     Indication: HEPATITIS B
  2. ATENOLOL [Concomitant]
     Indication: HYPERTENSION

REACTIONS (1)
  - HEPATIC NEOPLASM MALIGNANT [None]
